FAERS Safety Report 4910439-3 (Version None)
Quarter: 2006Q1

REPORT INFORMATION
  Report Type: 
  Country: None (occurrence: None)
  Receive Date: 20060209
  Receipt Date: 20060125
  Transmission Date: 20060701
  Serious: Yes (Hospitalization)
  Sender: FDA-Public Use
  Company Number: 13310

PATIENT
  Age: 54 Year
  Sex: Female

DRUGS (8)
  1. METHOTREXATE [Suspect]
     Indication: NON-HODGKIN'S LYMPHOMA
     Dosage: 1560 MG QD IV
     Route: 042
     Dates: start: 20051104, end: 20051105
  2. ACYCLOVIR SODIUM [Concomitant]
  3. CIPRO /00697201/ [Concomitant]
  4. ATIVAN [Concomitant]
  5. FLUCONAZOLE [Concomitant]
  6. DECADRON /00016001/ [Concomitant]
  7. SOLU-MEDROL [Concomitant]
  8. COREG [Concomitant]

REACTIONS (2)
  - BLOOD CREATININE INCREASED [None]
  - RENAL IMPAIRMENT [None]
